FAERS Safety Report 24529535 (Version 3)
Quarter: 2024Q4

REPORT INFORMATION
  Report Type: Spontaneous
  Country: MA (occurrence: MA)
  Receive Date: 20241021
  Receipt Date: 20241211
  Transmission Date: 20250115
  Serious: Yes (Life-Threatening, Other)
  Sender: NOVARTIS
  Company Number: MA-002147023-NVSC2024MA204404

PATIENT
  Age: 75 Year
  Sex: Male

DRUGS (3)
  1. PAZOPANIB [Suspect]
     Active Substance: PAZOPANIB
     Indication: Clear cell renal cell carcinoma
     Dosage: 800 MG, QD
     Route: 065
  2. PAZOPANIB [Suspect]
     Active Substance: PAZOPANIB
     Dosage: 400 MG, QD (FOR 4 WEEKS)
     Route: 065
  3. PAZOPANIB [Suspect]
     Active Substance: PAZOPANIB
     Dosage: 200 MG, QD
     Route: 048
     Dates: start: 20200120, end: 20200302

REACTIONS (10)
  - Coronary artery stenosis [Recovering/Resolving]
  - Metastases to lung [Unknown]
  - Clear cell renal cell carcinoma [Unknown]
  - Malignant neoplasm progression [Unknown]
  - Hepatic cytolysis [Recovering/Resolving]
  - Aspartate aminotransferase increased [Recovering/Resolving]
  - Alanine aminotransferase increased [Recovering/Resolving]
  - Hepatic enzyme increased [Recovering/Resolving]
  - Palmar-plantar erythrodysaesthesia syndrome [Recovering/Resolving]
  - Gamma-glutamyltransferase increased [Recovering/Resolving]

NARRATIVE: CASE EVENT DATE: 20200713
